FAERS Safety Report 9614325 (Version 5)
Quarter: 2014Q1

REPORT INFORMATION
  Report Type: Report from Study
  Country: BR (occurrence: BR)
  Receive Date: 20131011
  Receipt Date: 20140220
  Transmission Date: 20141002
  Serious: Yes (Other)
  Sender: FDA-Public Use
  Company Number: BR-ROCHE-1286898

PATIENT
  Sex: Female
  Weight: 63 kg

DRUGS (15)
  1. XOLAIR [Suspect]
     Indication: ASTHMA
     Dosage: 2 DF (1 APPLICATION OF 150 MG IN EACH ARM)
     Route: 065
  2. XOLAIR [Suspect]
     Route: 065
     Dates: start: 20130918
  3. ACETYLSALICYLIC ACID [Concomitant]
     Dosage: REPORTED BRAND: ASPIRINA PREVENT
     Route: 065
     Dates: start: 2006
  4. FLUIR [Concomitant]
  5. ACLASTA [Concomitant]
  6. GLIFAGE [Concomitant]
     Route: 065
     Dates: start: 2006
  7. CLINFAR [Concomitant]
     Route: 065
     Dates: start: 2005
  8. ENALAPRIL [Concomitant]
     Route: 065
     Dates: start: 2005
  9. OMEPRAZOLE [Concomitant]
     Route: 065
     Dates: start: 2006
  10. TORLOS H [Concomitant]
     Route: 065
     Dates: start: 2006
  11. CLOPIDOGREL [Concomitant]
  12. AAS [Concomitant]
  13. SINGULAIR [Concomitant]
  14. CELESTONE [Concomitant]
  15. FORASEQ [Concomitant]

REACTIONS (8)
  - Lung infection [Recovering/Resolving]
  - Movement disorder [Not Recovered/Not Resolved]
  - Blood pressure decreased [Unknown]
  - Retinal vascular thrombosis [Unknown]
  - Dyspnoea [Recovered/Resolved]
  - Fatigue [Recovered/Resolved]
  - Wrong technique in drug usage process [Unknown]
  - Drug ineffective [Unknown]
